FAERS Safety Report 9357769 (Version 2)
Quarter: 2017Q2

REPORT INFORMATION
  Report Type: Spontaneous
  Country: US (occurrence: US)
  Receive Date: 20130620
  Receipt Date: 20170626
  Transmission Date: 20170830
  Serious: Yes (Other)
  Sender: FDA-Public Use
  Company Number: US-PFIZER INC-2013179371

PATIENT
  Age: 53 Year
  Sex: Female

DRUGS (8)
  1. SOMAVERT [Suspect]
     Active Substance: PEGVISOMANT
     Indication: ACROMEGALY
     Dosage: 30 MG (2 DF OF 15 MG), 1X/DAY
     Route: 058
  2. SEA OMEGA [Concomitant]
     Dosage: 30, UNK
  3. ADVIL [Concomitant]
     Active Substance: IBUPROFEN
     Dosage: 100 MG, UNK
  4. LORTAB [Concomitant]
     Active Substance: ACETAMINOPHEN\HYDROCODONE BITARTRATE
     Dosage: 7.5/ 500, UNK
  5. SOMAVERT [Suspect]
     Active Substance: PEGVISOMANT
     Indication: GIGANTISM
     Dosage: 40 MG, 1X/DAY (7 DAYS A WEEK)
  6. MUCINEX ER [Concomitant]
     Dosage: 600 MG, UNK
  7. VITAMIN B COMPLEX [Concomitant]
     Active Substance: CYANOCOBALAMIN\DEXPANTHENOL\NIACINAMIDE\PYRIDOXINE HYDROCHLORIDE\RIBOFLAVIN 5^-PHOSPHATE SODIUM\THIAMINE HYDROCHLORIDE\VITAMIN B COMPLEX
     Dosage: 100, UNK
  8. VITAMIN D3 [Concomitant]
     Active Substance: CHOLECALCIFEROL
     Dosage: 2000 IU, UNK

REACTIONS (8)
  - Headache [Unknown]
  - Product use issue [Unknown]
  - Back disorder [Unknown]
  - Injection site pain [Unknown]
  - Diarrhoea [Unknown]
  - Muscle spasms [Unknown]
  - Insomnia [Unknown]
  - Injection site bruising [Unknown]

NARRATIVE: CASE EVENT DATE: 20120925
